FAERS Safety Report 9868680 (Version 1)
Quarter: 2014Q1

REPORT INFORMATION
  Report Type: Report from Study
  Country: US (occurrence: US)
  Receive Date: 20140204
  Receipt Date: 20140204
  Transmission Date: 20141002
  Serious: Yes (Hospitalization, Other)
  Sender: FDA-Public Use
  Company Number: US-ABBVIE-14P-163-1195198-00

PATIENT
  Age: 25 Year
  Sex: Female
  Weight: 77.18 kg

DRUGS (3)
  1. LUPRON DEPOT [Suspect]
     Indication: ENDOMETRIOSIS
     Dates: start: 201312
  2. DILAUDID [Suspect]
     Indication: INTERVERTEBRAL DISC DISORDER
     Dates: start: 20140121, end: 20140121
  3. LEVOTHYROXINE [Concomitant]
     Indication: PRODUCT USED FOR UNKNOWN INDICATION

REACTIONS (9)
  - Intervertebral disc disorder [Unknown]
  - Convulsion [Recovered/Resolved]
  - Vomiting [Recovered/Resolved]
  - Lip discolouration [Recovered/Resolved]
  - Nail discolouration [Recovered/Resolved]
  - Overdose [Unknown]
  - Intervertebral disc protrusion [Not Recovered/Not Resolved]
  - Intervertebral disc protrusion [Unknown]
  - Intervertebral disc disorder [Recovered/Resolved]
